FAERS Safety Report 6082186-9 (Version None)
Quarter: 2009Q1

REPORT INFORMATION
  Report Type: 
  Country: None (occurrence: None)
  Receive Date: 20090218
  Receipt Date: 20090216
  Transmission Date: 20090719
  Serious: Yes (Hospitalization, Disabling)
  Sender: FDA-Public Use
  Company Number: A0768683A

PATIENT
  Age: 16 Year
  Sex: Female

DRUGS (5)
  1. ADVAIR DISKUS 100/50 [Suspect]
     Indication: ASTHMA
     Dosage: 1PUFF TWICE PER DAY
     Route: 055
     Dates: start: 20090210, end: 20090212
  2. FLOVENT [Suspect]
     Dosage: 2PUFF THREE TIMES PER DAY
     Route: 055
     Dates: start: 20090210, end: 20090212
  3. FLONASE [Suspect]
     Indication: DRUG USE FOR UNKNOWN INDICATION
     Route: 045
     Dates: start: 20090210, end: 20090212
  4. MAXAIR [Concomitant]
  5. SINGULAIR [Concomitant]

REACTIONS (6)
  - DYSARTHRIA [None]
  - HYPOAESTHESIA ORAL [None]
  - OVERDOSE [None]
  - PAIN IN JAW [None]
  - PARAESTHESIA ORAL [None]
  - TOOTHACHE [None]
